FAERS Safety Report 9254211 (Version 1)
Quarter: 2013Q2

REPORT INFORMATION
  Report Type: Spontaneous
  Country: US (occurrence: None)
  Receive Date: 20130416
  Receipt Date: 20130416
  Transmission Date: 20140414
  Serious: Yes (Other)
  Sender: FDA-Public Use
  Company Number: A13-038

PATIENT
  Age: 24 Year
  Sex: Female

DRUGS (4)
  1. ALLERGENIC EXTRACT- TREE [Suspect]
     Dosage: 0.20CC; ONCE, 057
     Dates: start: 20130313
  2. ALLERGENIC EXTRACT- RAGWEED, COMMON [Suspect]
  3. ALLERGENIC EXTRACT- MITE [Suspect]
  4. ALLEGRA [Concomitant]

REACTIONS (2)
  - Flushing [None]
  - Throat irritation [None]
